FAERS Safety Report 9357536 (Version 1)
Quarter: 2013Q2

REPORT INFORMATION
  Report Type: Spontaneous
  Country: GR (occurrence: GR)
  Receive Date: 20130620
  Receipt Date: 20130620
  Transmission Date: 20140414
  Serious: Yes (Other)
  Sender: FDA-Public Use
  Company Number: PHHY2013GR046802

PATIENT
  Age: 57 Year
  Sex: Male

DRUGS (3)
  1. STARLIX [Suspect]
     Indication: DIABETES MELLITUS
     Dosage: 60 MG, UNK
  2. VOLTAREN [Suspect]
     Indication: MYALGIA
     Dosage: UNK UKN, UNK
  3. DEPON [Concomitant]
     Indication: MYALGIA
     Dosage: UNK UKN, UNK

REACTIONS (4)
  - Pancreatitis chronic [Not Recovered/Not Resolved]
  - Abdominal pain upper [Recovered/Resolved]
  - Back pain [Recovered/Resolved]
  - Hypoglycaemia [Recovering/Resolving]
